FAERS Safety Report 6381541-7 (Version None)
Quarter: 2009Q3

REPORT INFORMATION
  Report Type: 
  Country: None (occurrence: None)
  Receive Date: 20090925
  Receipt Date: 20090914
  Transmission Date: 20100115
  Serious: Yes (Other)
  Sender: FDA-Public Use
  Company Number: ADR28012009

PATIENT
  Sex: Female

DRUGS (4)
  1. TOPIRAMATE [Suspect]
     Dosage: 350 MG
  2. LAMOTRIGINE [Suspect]
     Dosage: 300 MG
  3. LEVITERACETAM (MFR: UNKNOWN) [Suspect]
     Indication: EPILEPSY
     Dosage: 1750 MG ORAL
     Route: 048
  4. PRIMIDONE (1000 MG) [Concomitant]

REACTIONS (5)
  - CONDITION AGGRAVATED [None]
  - DRUG EXPOSURE DURING PREGNANCY [None]
  - GRAND MAL CONVULSION [None]
  - MYOCLONIC EPILEPSY [None]
  - PSYCHOTIC DISORDER [None]
